FAERS Safety Report 16894922 (Version 3)
Quarter: 2019Q4

REPORT INFORMATION
  Report Type: Spontaneous
  Country: JP (occurrence: JP)
  Receive Date: 20191008
  Receipt Date: 20191227
  Transmission Date: 20200122
  Serious: Yes (Other)
  Sender: FDA-Public Use
  Company Number: JP-ASTRAZENECA-2019SE73825

PATIENT
  Age: 26059 Day
  Sex: Male
  Weight: 58 kg

DRUGS (9)
  1. MAGNESIUM OXIDE. [Concomitant]
     Active Substance: MAGNESIUM OXIDE
     Indication: CONSTIPATION
     Dosage: 500.0MG UNKNOWN
     Route: 048
     Dates: start: 201902
  2. ALLOID G [Concomitant]
     Active Substance: SODIUM ALGINATE
     Indication: HUNGER
     Route: 048
  3. NAIXAN [Concomitant]
     Active Substance: NAPROXEN SODIUM
     Indication: TUMOUR ASSOCIATED FEVER
     Route: 048
     Dates: start: 20190219, end: 20190509
  4. BROTIZOLAM OD [Concomitant]
     Indication: INSOMNIA
     Dosage: 0.25MG UNKNOWN
     Route: 048
     Dates: start: 201902
  5. L-CARBOCISTEINE [Concomitant]
     Active Substance: CARBOCYSTEINE
     Indication: COUGH
     Route: 048
     Dates: start: 201901
  6. DEXTROMETHORPHAN HYDROBROMIDE HYDRATE [Concomitant]
     Active Substance: DEXTROMETHORPHAN HYDROBROMIDE
     Indication: COUGH
     Route: 048
     Dates: start: 201901
  7. IMFINZI [Suspect]
     Active Substance: DURVALUMAB
     Indication: NON-SMALL CELL LUNG CANCER
     Route: 041
     Dates: start: 20190425, end: 20190425
  8. LANSOPRAZOLE OD [Concomitant]
     Active Substance: LANSOPRAZOLE
     Indication: PROPHYLAXIS AGAINST GASTROINTESTINAL ULCER
     Route: 048
     Dates: start: 201902
  9. ALLOID G [Concomitant]
     Active Substance: SODIUM ALGINATE
     Indication: HUNGER
     Route: 048

REACTIONS (1)
  - Radiation pneumonitis [Not Recovered/Not Resolved]

NARRATIVE: CASE EVENT DATE: 20190509
